FAERS Safety Report 9708200 (Version 1)
Quarter: 2013Q4

REPORT INFORMATION
  Report Type: Spontaneous
  Country: IT (occurrence: IT)
  Receive Date: 20131125
  Receipt Date: 20131125
  Transmission Date: 20140711
  Serious: Yes (Other)
  Sender: FDA-Public Use
  Company Number: IT-TEVA-446073ISR

PATIENT
  Age: 53 Year
  Sex: Female

DRUGS (3)
  1. CARBOPLATINO TEVA [Suspect]
     Indication: HETEROPLASIA
     Dosage: 590 MILLIGRAM DAILY; CONCENTRATE FOR SOLUTION FOR INTRAVENOUS INFUSION
     Route: 042
  2. ONDANSETRON [Concomitant]
     Dosage: 1 DOSAGE FORMS DAILY;
     Route: 042
     Dates: start: 20131016, end: 20131016
  3. DECADRON [Concomitant]
     Dosage: 16 MILLIGRAM DAILY;
     Route: 042
     Dates: start: 20131016, end: 20131016

REACTIONS (4)
  - Erythema [Recovered/Resolved]
  - Sense of oppression [Recovered/Resolved]
  - Pruritus [Recovered/Resolved]
  - Infusion related reaction [Recovered/Resolved]
